FAERS Safety Report 4544958-9 (Version None)
Quarter: 2005Q1

REPORT INFORMATION
  Report Type: 
  Country: None (occurrence: None)
  Receive Date: 20050104
  Receipt Date: 20041222
  Transmission Date: 20050727
  Serious: Yes (Hospitalization)
  Sender: FDA-Public Use
  Company Number: GXKR2004US00644

PATIENT
  Age: 8 Year
  Sex: Male

DRUGS (5)
  1. CIPROFLOXACIN [Suspect]
     Indication: URINARY TRACT INFECTION
     Dosage: 250 MG, BID, ORAL
     Route: 048
  2. CO-TRIMOXAZOLE (CO-TRIMOXAZOLE) [Suspect]
     Indication: URINARY TRACT INFECTION
  3. CEFOTAXIME SODIUM [Suspect]
     Indication: URINARY TRACT INFECTION
     Dosage: INTRAVENOUS
     Route: 042
  4. ENEMAS (NO INGRDIENTS/SUBSTANCES) [Concomitant]
  5. ANTICHOLINERGICS (NO INGREDIENTS/SUBSTANCES) [Concomitant]

REACTIONS (5)
  - BLOOD ALBUMIN DECREASED [None]
  - BLOOD SODIUM DECREASED [None]
  - CLOSTRIDIUM COLITIS [None]
  - HAEMATOCHEZIA [None]
  - POST PROCEDURAL COMPLICATION [None]
